FAERS Safety Report 6050793-5 (Version None)
Quarter: 2009Q1

REPORT INFORMATION
  Report Type: 
  Country: None (occurrence: None)
  Receive Date: 20090126
  Receipt Date: 20080221
  Transmission Date: 20090719
  Serious: No
  Sender: FDA-Public Use
  Company Number: US-ABBOTT-08P-163-0439426-00

PATIENT
  Sex: Male
  Weight: 77.18 kg

DRUGS (4)
  1. TRICOR [Suspect]
     Indication: BLOOD TRIGLYCERIDES INCREASED
     Route: 048
     Dates: start: 20080101
  2. TRICOR [Suspect]
     Indication: BLOOD CHOLESTEROL
  3. LOVAZA [Concomitant]
     Indication: BLOOD TRIGLYCERIDES INCREASED
     Route: 048
     Dates: start: 20060701
  4. LOVAZA [Concomitant]
     Indication: BLOOD CHOLESTEROL

REACTIONS (2)
  - BLOOD ALKALINE PHOSPHATASE DECREASED [None]
  - BLOOD GLUCOSE INCREASED [None]
